FAERS Safety Report 21280315 (Version 3)
Quarter: 2022Q4

REPORT INFORMATION
  Report Type: Spontaneous
  Country: BR (occurrence: BR)
  Receive Date: 20220901
  Receipt Date: 20221130
  Transmission Date: 20230113
  Serious: Yes (Death, Life-Threatening)
  Sender: FDA-Public Use
  Company Number: BR-BoehringerIngelheim-2022-BI-189436

PATIENT
  Age: 80 Year
  Sex: Female
  Weight: 60 kg

DRUGS (7)
  1. ALTEPLASE [Suspect]
     Active Substance: ALTEPLASE
     Indication: Ischaemic stroke
     Dosage: INFUSION PUMP, MOST RECENT DOSE 10/AUG/2022
     Route: 042
     Dates: start: 20220810, end: 20220810
  2. ALTEPLASE [Suspect]
     Active Substance: ALTEPLASE
     Dosage: ATTACK DOSE, MOST RECENT DOSE 10/AUG/2022
     Route: 042
     Dates: start: 20220810
  3. ASPIRIN [Concomitant]
     Active Substance: ASPIRIN
     Indication: Product used for unknown indication
  4. CLOPIDOGREL [Concomitant]
     Active Substance: CLOPIDOGREL BISULFATE
     Indication: Product used for unknown indication
  5. METOPROLOL SUCCINATE [Concomitant]
     Active Substance: METOPROLOL SUCCINATE
     Indication: Product used for unknown indication
  6. LOSARTAN POTASSIUM [Concomitant]
     Active Substance: LOSARTAN POTASSIUM
     Indication: Product used for unknown indication
  7. SIMVASTATIN [Concomitant]
     Active Substance: SIMVASTATIN
     Indication: Product used for unknown indication

REACTIONS (4)
  - Cerebral haemorrhage [Fatal]
  - Haemorrhagic stroke [Fatal]
  - Depressed level of consciousness [Not Recovered/Not Resolved]
  - Mydriasis [Not Recovered/Not Resolved]

NARRATIVE: CASE EVENT DATE: 20220810
